FAERS Safety Report 9462461 (Version 1)
Quarter: 2013Q3

REPORT INFORMATION
  Report Type: Spontaneous
  Country: GB (occurrence: GB)
  Receive Date: 20130816
  Receipt Date: 20130816
  Transmission Date: 20140515
  Serious: Yes (Other)
  Sender: FDA-Public Use
  Company Number: GB-PFIZER INC-2013233395

PATIENT
  Age: 79 Year
  Sex: Male

DRUGS (5)
  1. MYCOPHENOLATE MOFETIL [Suspect]
     Indication: PEMPHIGUS
     Dosage: 1500 MG DAILY
     Route: 048
  2. PREDNISOLONE [Suspect]
     Indication: PEMPHIGUS
     Dosage: 60 MG DAILY
     Route: 048
  3. LISINOPRIL [Concomitant]
     Dosage: UNK
  4. FUROSEMIDE [Concomitant]
  5. OMEPRAZOLE [Concomitant]

REACTIONS (1)
  - Rectal haemorrhage [Unknown]
